FAERS Safety Report 4319375-7 (Version None)
Quarter: 2004Q1

REPORT INFORMATION
  Report Type: 
  Country: None (occurrence: None)
  Receive Date: 20040318
  Receipt Date: 20040318
  Transmission Date: 20041129
  Serious: Yes (Hospitalization)
  Sender: FDA-Public Use
  Company Number: None

PATIENT
  Sex: Female

DRUGS (9)
  1. AMIODARONE HCL [Suspect]
     Indication: ATRIAL FIBRILLATION
     Dosage: 200 MG QD ORAL
     Route: 048
     Dates: start: 20030401, end: 20030508
  2. DIGOXIN [Suspect]
     Indication: ATRIAL FIBRILLATION
     Dosage: 0.125 MG QD ORAL
     Route: 048
     Dates: start: 20030401, end: 20030508
  3. PANTOPRAZOLE -PROTONIX- [Concomitant]
  4. LASIX [Concomitant]
  5. POTASSIUM CHLORIDE [Concomitant]
  6. LEVOTHYROXINE -LEVOXYL- [Concomitant]
  7. PAROXETINE -PAXIL- [Concomitant]
  8. DONEZEPIL -ARICEPT- [Concomitant]
  9. HYDREA [Concomitant]

REACTIONS (3)
  - BRADYCARDIA [None]
  - DISORIENTATION [None]
  - THERAPEUTIC AGENT TOXICITY [None]
